FAERS Safety Report 19667700 (Version 2)
Quarter: 2021Q4

REPORT INFORMATION
  Report Type: Report from Study
  Country: US (occurrence: US)
  Receive Date: 20210806
  Receipt Date: 20211111
  Transmission Date: 20220303
  Serious: No
  Sender: FDA-Public Use
  Company Number: US-AURINIA PHARMACEUTICALS INC.-AUR-000260

PATIENT
  Sex: Female

DRUGS (1)
  1. LUPKYNIS [Suspect]
     Active Substance: VOCLOSPORIN
     Indication: Lupus nephritis
     Dosage: 23.7 MILLIGRAM, BID
     Route: 048
     Dates: start: 20210325, end: 20210719

REACTIONS (7)
  - Pollakiuria [Unknown]
  - Swelling face [Unknown]
  - Gingival swelling [Unknown]
  - Neck mass [Unknown]
  - Chest pain [Unknown]
  - Diarrhoea [Unknown]
  - Headache [Unknown]
